FAERS Safety Report 18707932 (Version 3)
Quarter: 2022Q3

REPORT INFORMATION
  Report Type: Spontaneous
  Country: BR (occurrence: BR)
  Receive Date: 20210106
  Receipt Date: 20220714
  Transmission Date: 20221027
  Serious: Yes (Hospitalization, Other)
  Sender: FDA-Public Use
  Company Number: BR-GLAXOSMITHKLINE-BR2019AMR170614

PATIENT

DRUGS (7)
  1. BENLYSTA [Suspect]
     Active Substance: BELIMUMAB
     Indication: Systemic lupus erythematosus
     Dosage: UNK
     Dates: start: 20190823, end: 202012
  2. PANTOPRAZOLE [Suspect]
     Active Substance: PANTOPRAZOLE
     Indication: Product used for unknown indication
     Dosage: UNK
  3. HYDROXYCHLOROQUINE SULFATE [Suspect]
     Active Substance: HYDROXYCHLOROQUINE SULFATE
     Indication: Product used for unknown indication
     Dosage: UNK
  4. PREDNISONE [Suspect]
     Active Substance: PREDNISONE
     Indication: Product used for unknown indication
     Dosage: UNK
  5. METHOTREXATE [Suspect]
     Active Substance: METHOTREXATE
     Indication: Product used for unknown indication
     Dosage: UNK
  6. METOPROLOL [Suspect]
     Active Substance: METOPROLOL
     Indication: Product used for unknown indication
     Dosage: UNK
  7. LOSARTAN [Suspect]
     Active Substance: LOSARTAN
     Indication: Product used for unknown indication
     Dosage: UNK

REACTIONS (20)
  - Kidney infection [Unknown]
  - Systemic lupus erythematosus [Not Recovered/Not Resolved]
  - Hospitalisation [Unknown]
  - Arthralgia [Unknown]
  - Anaemia [Unknown]
  - Oropharyngeal pain [Unknown]
  - Ear infection [Unknown]
  - Arthritis [Unknown]
  - Dysstasia [Unknown]
  - Stress [Unknown]
  - Crying [Unknown]
  - Malaise [Unknown]
  - Abdominal discomfort [Unknown]
  - Urinary tract infection [Unknown]
  - Hyperglycaemia [Unknown]
  - Peripheral swelling [Unknown]
  - Thinking abnormal [Unknown]
  - Inappropriate schedule of product administration [Unknown]
  - Product dose omission issue [Unknown]
  - Drug ineffective [Unknown]

NARRATIVE: CASE EVENT DATE: 20201201
